FAERS Safety Report 4371473-8 (Version None)
Quarter: 2004Q2

REPORT INFORMATION
  Report Type: 
  Country: None (occurrence: None)
  Receive Date: 20040601
  Receipt Date: 20040513
  Transmission Date: 20050107
  Serious: Yes (Hospitalization)
  Sender: FDA-Public Use
  Company Number: 198094

PATIENT
  Age: 53 Year
  Sex: Female
  Weight: 111.1313 kg

DRUGS (4)
  1. AVONEX [Suspect]
     Indication: MULTIPLE SCLEROSIS
     Dosage: 30 MCG QW IM
     Route: 030
     Dates: start: 20010930, end: 20030101
  2. AVONEX [Suspect]
     Indication: MULTIPLE SCLEROSIS
     Dosage: 30 MCG QW IM
     Route: 030
     Dates: start: 20030101
  3. CELEBREX [Concomitant]
  4. VALIUM [Concomitant]

REACTIONS (3)
  - CHEST DISCOMFORT [None]
  - MULTIPLE SCLEROSIS [None]
  - PULMONARY EMBOLISM [None]
